FAERS Safety Report 7577027-4 (Version None)
Quarter: 2011Q2

REPORT INFORMATION
  Report Type: 
  Country: None (occurrence: None)
  Receive Date: 20110628
  Receipt Date: 20110624
  Transmission Date: 20111010
  Serious: No
  Sender: FDA-Public Use
  Company Number: US-PFIZER INC-2011141228

PATIENT
  Sex: Female
  Weight: 53.515 kg

DRUGS (2)
  1. ADVIL LIQUI-GELS [Suspect]
     Indication: HEADACHE
     Dosage: 2 CAPSULES, EVERY 4 HOURS
     Route: 048
  2. ADVIL LIQUI-GELS [Suspect]
     Indication: MUSCULOSKELETAL PAIN

REACTIONS (1)
  - DRUG INEFFECTIVE [None]
